FAERS Safety Report 20778826 (Version 3)
Quarter: 2022Q4

REPORT INFORMATION
  Report Type: Spontaneous
  Country: JP (occurrence: JP)
  Receive Date: 20220503
  Receipt Date: 20221028
  Transmission Date: 20230112
  Serious: Yes (Life-Threatening, Hospitalization, Other)
  Sender: FDA-Public Use
  Company Number: JP-PFIZER INC-202200433190

PATIENT
  Age: 57 Year
  Sex: Male
  Weight: 69.5 kg

DRUGS (3)
  1. GEMCITABINE HYDROCHLORIDE [Suspect]
     Active Substance: GEMCITABINE HYDROCHLORIDE
     Indication: Pancreatic carcinoma
     Dosage: 21000 MG/M2, 7 CYCLIC (1000 MG/M^2/DOSE, 3 CONSECUTIVE WEEKS OF ONCE A WEEK CHEMO WASHOUT WEEK 4 )
  2. GEMCITABINE HYDROCHLORIDE [Suspect]
     Active Substance: GEMCITABINE HYDROCHLORIDE
     Dosage: 15000 MG/M2, 5 CYCLIC (1000 MG/M^2/DOSE, 3 CONSECUTIVE WEEKS OF ONCE A WEEK CHEMO WASHOUT WEEK 4  )
  3. PACLITAXEL [Suspect]
     Active Substance: PACLITAXEL
     Indication: Pancreatic carcinoma
     Dosage: 1875 MG/M2, 5 CYCLIC (125 MG/M^2/DOSE, 3 CONSECUTIVE WEEKS OF ONCE A WEEK CHEMO WASHOUT WEEK 4)

REACTIONS (4)
  - Thrombotic microangiopathy [Recovering/Resolving]
  - Cardiac failure [Recovering/Resolving]
  - Pulmonary hypertension [Recovering/Resolving]
  - Neuropathy peripheral [Unknown]
